FAERS Safety Report 7426987-0 (Version None)
Quarter: 2011Q2

REPORT INFORMATION
  Report Type: 
  Country: None (occurrence: None)
  Receive Date: 20110420
  Receipt Date: 20110413
  Transmission Date: 20111010
  Serious: Yes (Hospitalization, Other)
  Sender: FDA-Public Use
  Company Number: US-ABBOTT-11P-163-0718872-00

PATIENT
  Sex: Female

DRUGS (9)
  1. AMBIEN [Suspect]
     Indication: SLEEP DISORDER
     Route: 048
     Dates: end: 20100101
  2. TOPROL-XL [Concomitant]
     Indication: PRODUCT USED FOR UNKNOWN INDICATION
  3. LIPITOR [Concomitant]
     Indication: BLOOD CHOLESTEROL INCREASED
  4. ALLOPURINOL [Concomitant]
     Indication: GOUT
  5. VICODIN [Suspect]
     Indication: PAIN
     Dosage: 1 -5/325 MG TABLET EVERY 6 HOURS
     Route: 048
     Dates: start: 20110228
  6. CHANTIX [Suspect]
     Indication: SMOKING CESSATION THERAPY
     Route: 048
     Dates: start: 20110301
  7. XANAX [Suspect]
     Indication: STRESS
     Route: 048
  8. MAGNESIUM [Concomitant]
     Indication: PRODUCT USED FOR UNKNOWN INDICATION
  9. SPIRONOLACTONE [Concomitant]
     Indication: PRODUCT USED FOR UNKNOWN INDICATION

REACTIONS (5)
  - HYPERSOMNIA [None]
  - NERVE INJURY [None]
  - ANKLE FRACTURE [None]
  - TENDON RUPTURE [None]
  - MUSCLE RUPTURE [None]
